FAERS Safety Report 23221399 (Version 2)
Quarter: 2023Q4

REPORT INFORMATION
  Report Type: Spontaneous
  Country: US (occurrence: US)
  Receive Date: 20231123
  Receipt Date: 20231222
  Transmission Date: 20240110
  Serious: Yes (Hospitalization)
  Sender: FDA-Public Use
  Company Number: US-EDENBRIDGE PHARMACEUTICALS, LLC-US-2023EDE000098

PATIENT
  Age: 22 Year
  Sex: Female

DRUGS (2)
  1. DARTISLA ODT [Suspect]
     Active Substance: GLYCOPYRROLATE
     Indication: Hyperhidrosis
     Dosage: UNK
     Route: 048
  2. GLYCOPYRROLATE [Suspect]
     Active Substance: GLYCOPYRROLATE
     Indication: Hyperhidrosis
     Dosage: UNK
     Route: 048

REACTIONS (2)
  - Anisocoria [Recovered/Resolved]
  - Conversion disorder [Unknown]
